FAERS Safety Report 17259049 (Version 5)
Quarter: 2020Q2

REPORT INFORMATION
  Report Type: Spontaneous
  Country: US (occurrence: US)
  Receive Date: 20200110
  Receipt Date: 20200511
  Transmission Date: 20200713
  Serious: No
  Sender: FDA-Public Use
  Company Number: US-PFIZER INC-2020009807

PATIENT
  Age: 54 Year
  Sex: Female

DRUGS (5)
  1. XELJANZ XR [Suspect]
     Active Substance: TOFACITINIB CITRATE
     Dosage: 11 MG, 1X/DAY
     Route: 048
     Dates: start: 20190827, end: 20200409
  2. LEFLUNOMIDE. [Concomitant]
     Active Substance: LEFLUNOMIDE
     Indication: RHEUMATOID ARTHRITIS
     Dosage: 20 MG, 1X/DAY
     Dates: start: 201703
  3. PREDNISONE. [Concomitant]
     Active Substance: PREDNISONE
     Dosage: TAPERING DOSES
     Dates: start: 20200504
  4. XELJANZ XR [Suspect]
     Active Substance: TOFACITINIB CITRATE
     Indication: RHEUMATOID ARTHRITIS
     Dosage: 11 MG, 1X/DAY
     Route: 048
     Dates: start: 20190820
  5. MELOXICAM. [Concomitant]
     Active Substance: MELOXICAM
     Indication: RHEUMATOID ARTHRITIS
     Dosage: 15 MG, 1X/DAY
     Dates: start: 201701

REACTIONS (7)
  - Musculoskeletal stiffness [Unknown]
  - Nasopharyngitis [Recovered/Resolved]
  - Pain [Unknown]
  - Arthritis [Unknown]
  - Pain in extremity [Recovered/Resolved]
  - Swelling [Unknown]
  - Product dose omission [Unknown]

NARRATIVE: CASE EVENT DATE: 20200408
